FAERS Safety Report 11230090 (Version 1)
Quarter: 2015Q3

REPORT INFORMATION
  Report Type: Spontaneous
  Country: GB (occurrence: GB)
  Receive Date: 20150701
  Receipt Date: 20150701
  Transmission Date: 20151125
  Serious: Yes (Other)
  Sender: FDA-Public Use
  Company Number: GB-CIPLA LTD.-2015GB05123

PATIENT

DRUGS (1)
  1. GEMCITABINE [Suspect]
     Active Substance: GEMCITABINE\GEMCITABINE HYDROCHLORIDE
     Indication: NON-SMALL CELL LUNG CANCER
     Dosage: 100 MG/M2 OVER APPROXIMATELY 30 MIN 2 HRS PRIOR TO COMMENCING RADIOTHERAPY ON DAYS 1, 8, 15 AND 22
     Route: 042

REACTIONS (1)
  - Pneumothorax [Unknown]
